FAERS Safety Report 20868839 (Version 1)
Quarter: 2022Q2

REPORT INFORMATION
  Report Type: Spontaneous
  Country: US (occurrence: US)
  Receive Date: 20220524
  Receipt Date: 20220524
  Transmission Date: 20220721
  Serious: No
  Sender: FDA-Public Use
  Company Number: US-PFIZER INC-202200657408

PATIENT
  Age: 57 Year
  Sex: Female
  Weight: 96.61 kg

DRUGS (1)
  1. XANAX [Suspect]
     Active Substance: ALPRAZOLAM
     Dosage: 0.5 MG

REACTIONS (1)
  - Drug withdrawal syndrome [Unknown]
